FAERS Safety Report 5890222-5 (Version None)
Quarter: 2008Q3

REPORT INFORMATION
  Report Type: 
  Country: None (occurrence: None)
  Receive Date: 20080919
  Receipt Date: 20080911
  Transmission Date: 20090109
  Serious: Yes (Death)
  Sender: FDA-Public Use
  Company Number: US-PFIZER INC-2008076557

PATIENT
  Sex: Female

DRUGS (1)
  1. CAMPTOSAR [Suspect]
     Dosage: DAILY DOSE:110MG-FREQ:ONCE A WEEK FOR 4 WEEKS

REACTIONS (1)
  - DEATH [None]
